FAERS Safety Report 5016457-1 (Version None)
Quarter: 2006Q2

REPORT INFORMATION
  Report Type: 
  Country: None (occurrence: None)
  Receive Date: 20060531
  Receipt Date: 20060531
  Transmission Date: 20061013
  Serious: Yes (Hospitalization)
  Sender: FDA-Public Use
  Company Number: None

PATIENT
  Age: 42 Year

DRUGS (1)
  1. METOPROLOL TARTRATE [Suspect]
     Indication: HYPERTENSION
     Dosage: 75 MG PO BID
     Route: 048
     Dates: start: 20060331, end: 20060403

REACTIONS (3)
  - ALCOHOL USE [None]
  - DIZZINESS [None]
  - TREMOR [None]
